FAERS Safety Report 10668148 (Version 1)
Quarter: 2014Q4

REPORT INFORMATION
  Report Type: Spontaneous
  Country: CH (occurrence: CH)
  Receive Date: 20141222
  Receipt Date: 20141222
  Transmission Date: 20150529
  Serious: Yes (Hospitalization)
  Sender: FDA-Public Use
  Company Number: CH-ASTRAZENECA-2014SE97066

PATIENT
  Age: 77 Year
  Sex: Female
  Weight: 89.4 kg

DRUGS (11)
  1. SINTROM [Suspect]
     Active Substance: ACENOCOUMAROL
     Route: 048
  2. PANTOZOL [Concomitant]
     Active Substance: PANTOPRAZOLE SODIUM
     Route: 048
  3. BRILIQUE [Suspect]
     Active Substance: TICAGRELOR
     Route: 048
  4. LEXOTANIL [Concomitant]
     Active Substance: BROMAZEPAM
     Route: 048
  5. XARELTO [Suspect]
     Active Substance: RIVAROXABAN
     Route: 048
     Dates: start: 2014, end: 20141102
  6. DEANXIT [Concomitant]
     Active Substance: FLUPENTIXOL DIHYDROCHLORIDE\MELITRACEN HYDROCHLORIDE
     Route: 048
  7. DAFALGAN [Concomitant]
     Active Substance: ACETAMINOPHEN
     Route: 048
  8. NOVOMIX 30 [Concomitant]
     Active Substance: INSULIN ASPART
     Route: 058
  9. LESCOL [Concomitant]
     Active Substance: FLUVASTATIN SODIUM
     Route: 048
  10. NOVORAPID [Concomitant]
     Active Substance: INSULIN ASPART
     Route: 058
  11. SOTALEX [Concomitant]
     Active Substance: SOTALOL
     Route: 048

REACTIONS (6)
  - Gastrointestinal haemorrhage [Unknown]
  - Melaena [Recovered/Resolved]
  - Presyncope [Unknown]
  - Syncope [Unknown]
  - Anaemia [Recovering/Resolving]
  - Dizziness [Unknown]

NARRATIVE: CASE EVENT DATE: 2014
